FAERS Safety Report 7057715-9 (Version None)
Quarter: 2010Q4

REPORT INFORMATION
  Report Type: 
  Country: None (occurrence: None)
  Receive Date: 20101022
  Receipt Date: 20101018
  Transmission Date: 20110411
  Serious: Yes (Life-Threatening, Hospitalization)
  Sender: FDA-Public Use
  Company Number: US-PFIZER INC-2010131764

PATIENT
  Sex: Male

DRUGS (26)
  1. HEPARIN SODIUM [Suspect]
  2. NITROGLYCERIN [Suspect]
  3. ISORDIL [Suspect]
  4. BLINDED THERAPY [Suspect]
     Indication: TYPE 2 DIABETES MELLITUS
     Dosage: UNK
     Route: 048
     Dates: start: 20100608
  5. MAGNESIUM [Concomitant]
  6. LOVAZA [Concomitant]
  7. POTASSIUM CHLORIDE [Concomitant]
  8. GLUCOSAMINE [Concomitant]
  9. CHONDROITIN [Concomitant]
  10. ASCORBIC ACID [Concomitant]
  11. MULTI-VITAMINS [Concomitant]
  12. ADVIL [Concomitant]
  13. DAYQUIL ^PROCTER + GAMBLE^ [Concomitant]
     Dosage: UNK
     Dates: start: 20100629
  14. NYQUIL [Concomitant]
     Dosage: UNK
     Dates: start: 20100619
  15. NEOSPORIN /USA/ [Concomitant]
     Dosage: UNK
     Dates: start: 20100730
  16. METFORMIN [Concomitant]
  17. HUMALOG [Concomitant]
     Dosage: UNK
     Dates: start: 20050201
  18. LANTUS [Concomitant]
     Dosage: UNK
     Dates: start: 20040803
  19. FUROSEMIDE [Concomitant]
  20. NIACIN [Concomitant]
  21. LISINOPRIL [Concomitant]
  22. ASPIRIN [Concomitant]
  23. PLAVIX [Concomitant]
  24. LOVASTATIN [Concomitant]
  25. CARVEDILOL [Concomitant]
  26. CO-Q-10 [Concomitant]

REACTIONS (2)
  - CHEST PAIN [None]
  - CORONARY ARTERY DISEASE [None]
